FAERS Safety Report 16627327 (Version 1)
Quarter: 2019Q3

REPORT INFORMATION
  Report Type: Spontaneous
  Country: FR (occurrence: FR)
  Receive Date: 20190724
  Receipt Date: 20190724
  Transmission Date: 20191004
  Serious: Yes (Hospitalization)
  Sender: FDA-Public Use
  Company Number: FR-MYLANLABS-2019M1068571

PATIENT
  Age: 83 Year
  Sex: Female
  Weight: 46 kg

DRUGS (13)
  1. GAVISCON                           /01279101/ [Concomitant]
  2. IPRATROPIUM [Suspect]
     Active Substance: IPRATROPIUM
     Indication: RESPIRATORY SYMPTOM
     Dosage: 1 DOSAGE FORM, QD
     Route: 055
     Dates: start: 20190119
  3. TERBUTALINE [Suspect]
     Active Substance: TERBUTALINE
     Indication: RESPIRATORY SYMPTOM
     Dosage: 1 DOSAGE FORM, QD
     Route: 055
     Dates: start: 20190119
  4. URBANYL [Concomitant]
     Active Substance: CLOBAZAM
     Dosage: UNK
  5. TAMIFLU [Suspect]
     Active Substance: OSELTAMIVIR PHOSPHATE
     Indication: INFLUENZA
     Dosage: 2 DOSAGE FORM, QD
     Route: 048
     Dates: start: 20190118, end: 20190121
  6. PAROXETINE. [Concomitant]
     Active Substance: PAROXETINE
  7. LOSARTAN POTASSIUM. [Concomitant]
     Active Substance: LOSARTAN POTASSIUM
  8. AMLODIPINE [Concomitant]
     Active Substance: AMLODIPINE BESYLATE
  9. FLECAINE [Concomitant]
     Active Substance: FLECAINIDE
  10. DOLIPRANE [Suspect]
     Active Substance: ACETAMINOPHEN
     Indication: INFLUENZA
     Dosage: 3 GRAM, QD
     Route: 048
     Dates: start: 20190119
  11. ESOMEPRAZOLE. [Concomitant]
     Active Substance: ESOMEPRAZOLE MAGNESIUM
  12. TEMESTA                            /00273201/ [Concomitant]
     Active Substance: LORAZEPAM
  13. ESIDREX [Concomitant]
     Active Substance: HYDROCHLOROTHIAZIDE
     Dosage: UNK

REACTIONS (3)
  - Confusional state [Not Recovered/Not Resolved]
  - Behaviour disorder [Not Recovered/Not Resolved]
  - Hallucination [Not Recovered/Not Resolved]

NARRATIVE: CASE EVENT DATE: 20190119
